FAERS Safety Report 18559514 (Version 1)
Quarter: 2020Q4

REPORT INFORMATION
  Report Type: Spontaneous
  Country: US (occurrence: US)
  Receive Date: 20201128
  Receipt Date: 20201128
  Transmission Date: 20210114
  Serious: No
  Sender: FDA-Public Use
  Company Number: None

PATIENT
  Age: 7 Year
  Sex: Female
  Weight: 22.5 kg

DRUGS (1)
  1. AMOXICILLIN AND CLAVULANTE POTASSIUM FOR ORAL SUSPECTION [Suspect]
     Active Substance: AMOXICILLIN\CLAVULANATE POTASSIUM
     Indication: INFECTION
     Dosage: ?          QUANTITY:7.5 ML;?
     Route: 048
     Dates: start: 20201120, end: 20201128

REACTIONS (3)
  - Product packaging quantity issue [None]
  - Liquid product physical issue [None]
  - Product preparation issue [None]

NARRATIVE: CASE EVENT DATE: 20201128
